FAERS Safety Report 12504791 (Version 1)
Quarter: 2016Q2

REPORT INFORMATION
  Report Type: Spontaneous
  Country: US (occurrence: US)
  Receive Date: 20160628
  Receipt Date: 20160628
  Transmission Date: 20160815
  Serious: No
  Sender: FDA-Public Use
  Company Number: PHEH2016US015900

PATIENT
  Age: 84 Year

DRUGS (1)
  1. VOTRIENT [Suspect]
     Active Substance: PAZOPANIB HYDROCHLORIDE
     Indication: PLATELET COUNT DECREASED
     Dosage: 4 DF, QD
     Route: 065
     Dates: start: 20160613, end: 20160620

REACTIONS (3)
  - Back pain [Unknown]
  - Product use issue [Unknown]
  - Blood pressure increased [Recovering/Resolving]

NARRATIVE: CASE EVENT DATE: 20160613
